APPROVED DRUG PRODUCT: GABAPENTIN
Active Ingredient: GABAPENTIN
Strength: 800MG
Dosage Form/Route: TABLET;ORAL
Application: A214957 | Product #002 | TE Code: AB1
Applicant: ASCENT PHARMACEUTICALS INC
Approved: Oct 1, 2021 | RLD: No | RS: No | Type: RX